FAERS Safety Report 24946586 (Version 1)
Quarter: 2025Q1

REPORT INFORMATION
  Report Type: Spontaneous
  Country: LK (occurrence: LK)
  Receive Date: 20250210
  Receipt Date: 20250210
  Transmission Date: 20250409
  Serious: Yes (Hospitalization)
  Sender: STRIDES
  Company Number: LK-STRIDES ARCOLAB LIMITED-2025SP001875

PATIENT
  Age: 15 Year
  Sex: Female

DRUGS (2)
  1. ALBUTEROL [Suspect]
     Active Substance: ALBUTEROL
     Indication: Product used for unknown indication
     Route: 065
  2. CHLORPHENIRAMINE MALEATE [Suspect]
     Active Substance: CHLORPHENIRAMINE MALEATE
     Indication: Product used for unknown indication
     Route: 065

REACTIONS (3)
  - Bundle branch block right [Unknown]
  - Cardiotoxicity [Unknown]
  - Overdose [Unknown]
